FAERS Safety Report 4554899-9 (Version None)
Quarter: 2004Q4

REPORT INFORMATION
  Report Type: 
  Country: None (occurrence: None)
  Receive Date: 20041222
  Receipt Date: 20041015
  Transmission Date: 20050328
  Serious: Yes (Hospitalization)
  Sender: FDA-Public Use
  Company Number: 209536

PATIENT
  Age: 76 Year
  Sex: Male
  Weight: 67.6 kg

DRUGS (4)
  1. AVASTIN [Suspect]
     Indication: COLON CANCER
     Dosage: 400 MG, QOW, INTRAVENOUS
     Route: 042
     Dates: start: 20040310
  2. CAMPTOSAR [Suspect]
     Indication: COLON CANCER
     Dosage: 150 MG, INTRAVENOUS
     Route: 042
     Dates: start: 20040301, end: 20040701
  3. FLUOROURACIL [Suspect]
     Indication: COLON CANCER
     Dosage: 500 MG, INTRAVENOUS
     Route: 042
     Dates: start: 20040301, end: 20040701
  4. LEUCOVORIN CALCIUM [Suspect]
     Indication: COLON CANCER
     Dosage: 40 MG, INTRAVENOUS
     Route: 042
     Dates: start: 20040301, end: 20040701

REACTIONS (3)
  - DIARRHOEA [None]
  - NAUSEA [None]
  - WEIGHT DECREASED [None]
